FAERS Safety Report 9993809 (Version 1)
Quarter: 2014Q1

REPORT INFORMATION
  Report Type: Spontaneous
  Country: US (occurrence: US)
  Receive Date: 20140310
  Receipt Date: 20140310
  Transmission Date: 20141002
  Serious: No
  Sender: FDA-Public Use
  Company Number: US-AMGEN-USASP2013021971

PATIENT
  Age: 61 Year
  Sex: Female

DRUGS (3)
  1. SENSIPAR [Suspect]
     Indication: PRODUCT USED FOR UNKNOWN INDICATION
     Dosage: 30 MG, QD
  2. SENSIPAR [Suspect]
     Dosage: 60 MG, QD
  3. SENSIPAR [Suspect]
     Dosage: 30 MG, QD

REACTIONS (7)
  - Incorrect dose administered [Unknown]
  - Paraesthesia [Unknown]
  - Arthralgia [Unknown]
  - Bone pain [Unknown]
  - Dysphonia [Unknown]
  - Malaise [Unknown]
  - Blood calcium decreased [Unknown]
